FAERS Safety Report 11565994 (Version 1)
Quarter: 2015Q3

REPORT INFORMATION
  Report Type: Spontaneous
  Country: US (occurrence: US)
  Receive Date: 20150916
  Receipt Date: 20150916
  Transmission Date: 20151125
  Serious: No
  Sender: FDA-Public Use
  Company Number: US-ELI_LILLY_AND_COMPANY-US200905003729

PATIENT
  Age: 71 Year
  Sex: Male

DRUGS (1)
  1. FORTEO [Suspect]
     Active Substance: TERIPARATIDE
     Dosage: UNK, UNKNOWN
     Route: 065
     Dates: start: 20090517

REACTIONS (4)
  - Dizziness [Unknown]
  - Headache [Unknown]
  - Nausea [Unknown]
  - Mood altered [Unknown]

NARRATIVE: CASE EVENT DATE: 20090517
